FAERS Safety Report 18130023 (Version 1)
Quarter: 2020Q3

REPORT INFORMATION
  Report Type: Spontaneous
  Country: CA (occurrence: CA)
  Receive Date: 20200810
  Receipt Date: 20200810
  Transmission Date: 20201103
  Serious: Yes (Hospitalization)
  Sender: FDA-Public Use
  Company Number: CA-ACCORD-194499

PATIENT
  Age: 75 Year
  Sex: Female

DRUGS (23)
  1. CELEBREX [Suspect]
     Active Substance: CELECOXIB
     Indication: ARTHRITIS
     Route: 048
  2. OXYCONTIN [Suspect]
     Active Substance: OXYCODONE HYDROCHLORIDE
     Indication: PRODUCT USED FOR UNKNOWN INDICATION
     Route: 065
  3. FENTANYL. [Suspect]
     Active Substance: FENTANYL
     Indication: PRODUCT USED FOR UNKNOWN INDICATION
     Route: 065
  4. IRON [Concomitant]
     Active Substance: IRON
  5. NORTRIPTYLINE [Concomitant]
     Active Substance: NORTRIPTYLINE
  6. TRAZODONE [Concomitant]
     Active Substance: TRAZODONE HYDROCHLORIDE
  7. ENBREL [Suspect]
     Active Substance: ETANERCEPT
     Indication: RHEUMATOID ARTHRITIS
     Dosage: 1 EVERY 1 WEEKS
     Route: 058
  8. ACTEMRA [Suspect]
     Active Substance: TOCILIZUMAB
     Indication: RHEUMATOID ARTHRITIS
     Dosage: 1 EVERY 1 MONTHS
     Route: 042
  9. HYDROXYCHLOROQUINE [Suspect]
     Active Substance: HYDROXYCHLOROQUINE
     Indication: PRODUCT USED FOR UNKNOWN INDICATION
     Dosage: 1 EVERY 1 DAYS
     Route: 065
  10. GENTEAL MILD [Concomitant]
     Active Substance: HYPROMELLOSE 2910 (4000 MPA.S)
  11. ORENCIA [Suspect]
     Active Substance: ABATACEPT
     Indication: RHEUMATOID ARTHRITIS
     Dosage: 1 EVERY 1 WEEKS
     Route: 058
  12. METHOTREXATE. [Suspect]
     Active Substance: METHOTREXATE
     Indication: RHEUMATOID ARTHRITIS
     Dosage: 1 EVERY 1 WEEKS
     Route: 058
  13. GABAPENTIN. [Suspect]
     Active Substance: GABAPENTIN
     Indication: PRODUCT USED FOR UNKNOWN INDICATION
     Dosage: 2 EVERY 1 DAYS
     Route: 048
  14. SULFASALAZINE. [Suspect]
     Active Substance: SULFASALAZINE
     Indication: RHEUMATOID ARTHRITIS
     Dosage: 1 EVERY 1 DAYS
     Route: 048
  15. MYOCHRYSINE [Suspect]
     Active Substance: GOLD SODIUM THIOMALATE
     Indication: PRODUCT USED FOR UNKNOWN INDICATION
     Route: 030
  16. ACLASTA [Concomitant]
     Active Substance: ZOLEDRONIC ACID
  17. PREDNISONE. [Concomitant]
     Active Substance: PREDNISONE
  18. TYLENOL [Concomitant]
     Active Substance: ACETAMINOPHEN
  19. LOMOTIL [Concomitant]
     Active Substance: ATROPINE SULFATE\DIPHENOXYLATE HYDROCHLORIDE
  20. ORENCIA [Suspect]
     Active Substance: ABATACEPT
     Indication: RHEUMATOID ARTHRITIS
     Dosage: 1 EVERY 1 MONTHS
     Route: 042
  21. ESOMEPRAZOLE/ESOMEPRAZOLE MAGNESIUM/ESOMEPRAZOLE SODIUM [Concomitant]
     Active Substance: ESOMEPRAZOLE
  22. NASONEX [Concomitant]
     Active Substance: MOMETASONE FUROATE
  23. RISEDRONIC ACID [Concomitant]
     Active Substance: RISEDRONIC ACID

REACTIONS (41)
  - Drug hypersensitivity [Unknown]
  - Dry eye [Unknown]
  - Gastrointestinal disorder [Unknown]
  - Myocardial infarction [Unknown]
  - Osteoarthritis [Unknown]
  - Skin lesion [Unknown]
  - Exostosis [Unknown]
  - Musculoskeletal stiffness [Unknown]
  - Blood magnesium increased [Unknown]
  - Cyst [Unknown]
  - Deafness neurosensory [Unknown]
  - Osteosclerosis [Unknown]
  - Pain in extremity [Unknown]
  - Pleural thickening [Unknown]
  - Renal impairment [Unknown]
  - Presbyacusis [Unknown]
  - Treatment failure [Unknown]
  - Crohn^s disease [Unknown]
  - Deformity [Unknown]
  - Drug ineffective [Unknown]
  - Nausea [Unknown]
  - Pain [Unknown]
  - Therapeutic product effect decreased [Unknown]
  - Arthropathy [Unknown]
  - Bone cyst [Unknown]
  - Contraindicated product administered [Unknown]
  - Drug intolerance [Unknown]
  - Hypersensitivity [Unknown]
  - Sleep disorder [Unknown]
  - Arthralgia [Unknown]
  - Rheumatoid arthritis [Unknown]
  - Blood potassium increased [Unknown]
  - Epigastric discomfort [Unknown]
  - Fatigue [Unknown]
  - Infection [Unknown]
  - Pleural fibrosis [Unknown]
  - Blood creatinine increased [Unknown]
  - Diarrhoea [Unknown]
  - Joint swelling [Unknown]
  - Mobility decreased [Unknown]
  - Osteopenia [Unknown]
